FAERS Safety Report 9500254 (Version 1)
Quarter: 2013Q3

REPORT INFORMATION
  Report Type: Spontaneous
  Country: US (occurrence: None)
  Receive Date: 20130904
  Receipt Date: 20130904
  Transmission Date: 20140515
  Serious: No
  Sender: FDA-Public Use
  Company Number: None

PATIENT
  Age: 80 Year
  Sex: Female

DRUGS (14)
  1. INLYTA [Suspect]
  2. GABAPENTIN [Concomitant]
     Route: 048
     Dates: start: 201204
  3. LEVOTHYROXINE [Concomitant]
  4. FUROSEMIDE [Concomitant]
  5. BYSTOLIC [Concomitant]
  6. OMEPRAZOLE [Concomitant]
  7. METFORMIN [Concomitant]
  8. LOW DOSE ASPIRIN [Concomitant]
  9. LISINOPRIL [Concomitant]
  10. TYLENOL [Concomitant]
  11. VISION FORMULA [Concomitant]
  12. VALPROIC ACID [Concomitant]
  13. LANTUS [Concomitant]
  14. NOVOLOG [Concomitant]

REACTIONS (1)
  - Diarrhoea [None]
